FAERS Safety Report 25761965 (Version 2)
Quarter: 2025Q3

REPORT INFORMATION
  Report Type: Report from Study
  Country: EU (occurrence: EU)
  Receive Date: 20250904
  Receipt Date: 20250917
  Transmission Date: 20251021
  Serious: Yes (Hospitalization, Other)
  Sender: TORRENT PHARMA INC.
  Company Number: None

PATIENT
  Age: 34 Year
  Sex: Male

DRUGS (1)
  1. PREGABALIN [Suspect]
     Active Substance: PREGABALIN
     Indication: Opioid sparing treatment
     Dosage: AVERAGE 600 MG DAILY DOSE, 600 MILLIGRAM, QD FOR 12 MONTHS
     Route: 065

REACTIONS (2)
  - Drug dependence [Unknown]
  - Medication error [Unknown]
